FAERS Safety Report 18293295 (Version 2)
Quarter: 2020Q4

REPORT INFORMATION
  Report Type: Spontaneous
  Country: PL (occurrence: PL)
  Receive Date: 20200922
  Receipt Date: 20201015
  Transmission Date: 20210113
  Serious: Yes (Other)
  Sender: FDA-Public Use
  Company Number: PL-ACCORD-201990

PATIENT
  Age: 67 Year
  Sex: Female

DRUGS (3)
  1. LETROZOLE. [Suspect]
     Active Substance: LETROZOLE
     Indication: BREAST CANCER
     Dosage: IN A 21-DAY CYCLE, 7-DAY BREAK
     Dates: start: 201811
  2. ZOLEDRONIC ACID [Concomitant]
     Active Substance: ZOLEDRONIC ACID
     Indication: PROPHYLAXIS
     Dates: start: 201811
  3. RIBOCICLIB. [Suspect]
     Active Substance: RIBOCICLIB
     Indication: BREAST CANCER
     Dosage: IN A 21-DAY CYCLE, 7-DAY BREAK
     Dates: start: 201811

REACTIONS (3)
  - Transaminases increased [Recovered/Resolved]
  - Neutropenia [Recovered/Resolved]
  - Pruritus [Unknown]

NARRATIVE: CASE EVENT DATE: 201812
